FAERS Safety Report 22169024 (Version 2)
Quarter: 2023Q2

REPORT INFORMATION
  Report Type: Spontaneous
  Country: NO (occurrence: NO)
  Receive Date: 20230404
  Receipt Date: 20230509
  Transmission Date: 20230722
  Serious: Yes (Hospitalization)
  Sender: FDA-Public Use
  Company Number: None

PATIENT
  Age: 9 Decade
  Sex: Female

DRUGS (23)
  1. GABAPENTIN [Suspect]
     Active Substance: GABAPENTIN
     Indication: Dementia with Lewy bodies
     Dosage: 1200 MILLIGRAM, QD (1200 MILLIGRAM DAILY; ONCE A DAY)
     Route: 065
  2. GABAPENTIN [Suspect]
     Active Substance: GABAPENTIN
     Indication: Panic attack
  3. VALPROIC ACID [Suspect]
     Active Substance: VALPROIC ACID
     Indication: Dementia with Lewy bodies
     Dosage: UNK, QD 200-400MG/DAY
     Route: 065
  4. VALPROIC ACID [Suspect]
     Active Substance: VALPROIC ACID
     Indication: Panic attack
  5. FLUPENTIXOL\MELITRACEN [Concomitant]
     Active Substance: FLUPENTIXOL\MELITRACEN
     Indication: Panic attack
     Dosage: 21 MILLIGRAM, QD (21 MILLIGRAM DAILY; ONCE A DAY)
     Route: 065
  6. FLUPENTIXOL\MELITRACEN [Concomitant]
     Active Substance: FLUPENTIXOL\MELITRACEN
     Dosage: 10.5 MILLIGRAM/DAY, DOSE WAS INITIALLY REDUCED AND THEN DISCONTINUED
     Route: 065
  7. FLUPENTIXOL\MELITRACEN [Concomitant]
     Active Substance: FLUPENTIXOL\MELITRACEN
     Dosage: 10.5 MILLIGRAM (10.5 MILLIGRAM DAILY; ONCE A DAY)
     Route: 065
  8. SERTRALINE [Concomitant]
     Active Substance: SERTRALINE HYDROCHLORIDE
     Indication: Panic attack
     Dosage: 50 MILLIGRAM, QD (50 MILLIGRAM DAILY; ONCE A DAY)
     Route: 065
  9. MIRTAZAPINE [Concomitant]
     Active Substance: MIRTAZAPINE
     Indication: Panic attack
     Dosage: 15 MILLIGRAM, QD (15 MILLIGRAM DAILY; ONCE A DAY)
     Route: 065
  10. DONEPEZIL [Concomitant]
     Active Substance: DONEPEZIL
     Indication: Dementia Alzheimer^s type
     Dosage: UNK
     Route: 065
  11. RIVASTIGMINE [Concomitant]
     Active Substance: RIVASTIGMINE
     Indication: Discomfort
     Dosage: 9.5 MILLIGRAM, QD (9.5 MILLIGRAM DAILY; ONCE A DAY)
     Route: 062
  12. RIVASTIGMINE [Concomitant]
     Active Substance: RIVASTIGMINE
     Indication: Dyspepsia
  13. BENSERAZIDE\LEVODOPA [Concomitant]
     Active Substance: BENSERAZIDE\LEVODOPA
     Indication: Parkinsonism
     Dosage: 750 MILLIGRAM/DAY, IN 4 DOSES
     Route: 065
  14. BENSERAZIDE\LEVODOPA [Concomitant]
     Active Substance: BENSERAZIDE\LEVODOPA
     Dosage: 625 MILLIGRAM/DAY, IN 4 DOSES
     Route: 065
  15. BENSERAZIDE\LEVODOPA [Concomitant]
     Active Substance: BENSERAZIDE\LEVODOPA
     Dosage: 750 MILLIGRAM/DAY,IN 4 DOSES (AFTER REBOUND EFFECT AGAIN INCREASED )
     Route: 065
  16. Sodium Oligomannate [Concomitant]
     Indication: Panic attack
     Dosage: UNK
     Route: 065
  17. MEMANTINE [Concomitant]
     Active Substance: MEMANTINE
     Indication: Hallucination, visual
     Dosage: UNK
     Route: 065
  18. PRAMIPEXOLE [Concomitant]
     Active Substance: PRAMIPEXOLE
     Indication: Product used for unknown indication
     Dosage: 0.5 MILLIGRAM, QD (0.5 MILLIGRAM DAILY; ONCE A DAY)
     Route: 065
  19. ESTAZOLAM [Concomitant]
     Active Substance: ESTAZOLAM
     Indication: Product used for unknown indication
     Dosage: 1 MILLIGRAM, QD (1 MILLIGRAM/ DAY)
     Route: 065
  20. QUETIAPINE [Concomitant]
     Active Substance: QUETIAPINE
     Indication: Dementia with Lewy bodies
     Dosage: 12.5 MILLIGRAM, QD (12.5 MILLIGRAM DAILY; ONCE A DAY)
     Route: 065
  21. SELEGILINE [Concomitant]
     Active Substance: SELEGILINE
     Indication: Dementia with Lewy bodies
     Dosage: UNK
     Route: 065
  22. RASAGILINE [Concomitant]
     Active Substance: RASAGILINE
     Indication: Dementia with Lewy bodies
     Dosage: UNK
     Route: 065
  23. LORAZEPAM [Concomitant]
     Active Substance: LORAZEPAM
     Indication: Dementia with Lewy bodies
     Dosage: 1.5 MILLIGRAM
     Route: 065

REACTIONS (2)
  - Symptom masked [Unknown]
  - Off label use [Unknown]
